FAERS Safety Report 5004939-8 (Version None)
Quarter: 2006Q1

REPORT INFORMATION
  Report Type: 
  Country: None (occurrence: None)
  Receive Date: 20060321
  Receipt Date: 20051227
  Transmission Date: 20060701
  Serious: No
  Sender: FDA-Public Use
  Company Number: YPA20050645

PATIENT
  Age: 91 Year
  Sex: Female

DRUGS (11)
  1. VESICARE [Suspect]
     Indication: POLLAKIURIA
     Dosage: 5 MG, UID/QD,ORAL
     Route: 048
     Dates: start: 20051207
  2. REVOXYL TABLET [Concomitant]
  3. NORVASC [Concomitant]
  4. AMARYL [Concomitant]
  5. NEURONTIN [Concomitant]
  6. LIPITOR [Concomitant]
  7. AVANDIA [Concomitant]
  8. ACIPHEX [Concomitant]
  9. FUROSEMIDE [Concomitant]
  10. LUMIGAN [Concomitant]
  11. ALPHAGAN [Concomitant]

REACTIONS (1)
  - NO THERAPEUTIC RESPONSE [None]
